FAERS Safety Report 13391384 (Version 1)
Quarter: 2017Q1

REPORT INFORMATION
  Report Type: Spontaneous
  Country: HR (occurrence: HR)
  Receive Date: 20170331
  Receipt Date: 20170331
  Transmission Date: 20170429
  Serious: Yes (Other)
  Sender: FDA-Public Use
  Company Number: HR-BAYER-2017-055881

PATIENT
  Sex: Female

DRUGS (8)
  1. WARFARIN [Concomitant]
     Active Substance: WARFARIN
  2. ASPIRIN PROTECT 100 MG [Suspect]
     Active Substance: ASPIRIN
     Dosage: 100 MG, QD
  3. INDAPAMIDE W/PERINDOPRIL [Concomitant]
     Active Substance: INDAPAMIDE\PERINDOPRIL
  4. MOXONIDINE [Concomitant]
     Active Substance: MOXONIDINE
     Dosage: 0.4 MG, QD
  5. INSULIN GLARGINE [Concomitant]
     Active Substance: INSULIN GLARGINE
     Dosage: 22 IU, QD
     Route: 058
  6. ATORVASTATIN [Concomitant]
     Active Substance: ATORVASTATIN
     Dosage: 20 MG, QD
  7. BISOPROLOL [Concomitant]
     Active Substance: BISOPROLOL
     Dosage: 2.5 MG, QD
  8. METFORMIN [Concomitant]
     Active Substance: METFORMIN HYDROCHLORIDE
     Dosage: 1000 MG, BID

REACTIONS (5)
  - Peripheral swelling [None]
  - Atrial fibrillation [None]
  - Dyspnoea [None]
  - Chest discomfort [None]
  - Exercise tolerance decreased [None]
